FAERS Safety Report 16636394 (Version 2)
Quarter: 2019Q3

REPORT INFORMATION
  Report Type: Spontaneous
  Country: US (occurrence: US)
  Receive Date: 20190726
  Receipt Date: 20190816
  Transmission Date: 20191004
  Serious: No
  Sender: FDA-Public Use
  Company Number: US-JNJFOC-20190709034

PATIENT
  Age: 69 Year
  Sex: Female

DRUGS (1)
  1. RISPERDAL CONSTA [Suspect]
     Active Substance: RISPERIDONE
     Indication: PRODUCT USED FOR UNKNOWN INDICATION
     Route: 030

REACTIONS (3)
  - Needle issue [Recovered/Resolved]
  - Accidental exposure to product [Recovered/Resolved]
  - Syringe issue [Recovered/Resolved]

NARRATIVE: CASE EVENT DATE: 20190627
